FAERS Safety Report 22278952 (Version 1)
Quarter: 2023Q2

REPORT INFORMATION
  Report Type: Spontaneous
  Country: CN (occurrence: None)
  Receive Date: 20230503
  Receipt Date: 20230503
  Transmission Date: 20230722
  Serious: Yes (Other)
  Sender: FDA-Public Use
  Company Number: 2023A098269

PATIENT
  Age: 26851 Day
  Sex: Male
  Weight: 49 kg

DRUGS (1)
  1. BUDESONIDE\FORMOTEROL\GLYCOPYRRONIUM [Suspect]
     Active Substance: BUDESONIDE\FORMOTEROL\GLYCOPYRRONIUM
     Indication: Bronchitis chronic
     Route: 055
     Dates: start: 20230410, end: 20230424

REACTIONS (2)
  - Leukoderma [Recovering/Resolving]
  - Vitiligo [Recovering/Resolving]

NARRATIVE: CASE EVENT DATE: 20230414
